FAERS Safety Report 8006271-7 (Version None)
Quarter: 2011Q4

REPORT INFORMATION
  Report Type: 
  Country: None (occurrence: None)
  Receive Date: 20111226
  Receipt Date: 20111222
  Transmission Date: 20120403
  Serious: Yes (Death, Hospitalization, Other)
  Sender: FDA-Public Use
  Company Number: PHHY2011LB105829

PATIENT
  Age: 84 Year
  Sex: Male

DRUGS (4)
  1. CATAFLAM [Concomitant]
  2. ZOLEDRONOC ACID [Suspect]
     Dosage: 5 MG
     Route: 042
     Dates: start: 20111124
  3. ZANTAC [Concomitant]
  4. PRADEXA [Concomitant]
     Dosage: 75 MG, UNK

REACTIONS (6)
  - MULTI-ORGAN FAILURE [None]
  - PULMONARY OEDEMA [None]
  - ARRHYTHMIA [None]
  - DEATH [None]
  - ANURIA [None]
  - BLOOD CREATININE INCREASED [None]
